FAERS Safety Report 25994749 (Version 2)
Quarter: 2025Q4

REPORT INFORMATION
  Report Type: Spontaneous
  Country: US (occurrence: US)
  Receive Date: 20251104
  Receipt Date: 20251104
  Transmission Date: 20260118
  Serious: No
  Sender: BRISTOL-MYERS SQUIBB COMPANY
  Company Number: US-BRISTOL-MYERS SQUIBB COMPANY-2025-149374

PATIENT
  Age: 43 Year
  Sex: Male
  Weight: 128.82 kg

DRUGS (7)
  1. COBENFY [Suspect]
     Active Substance: TROSPIUM CHLORIDE\XANOMELINE
     Indication: Schizoaffective disorder
     Dosage: DOSE: 100MG/20MG
     Route: 048
     Dates: start: 20251028
  2. COBENFY [Suspect]
     Active Substance: TROSPIUM CHLORIDE\XANOMELINE
     Dosage: FOR 2 DAYS
     Route: 048
  3. ZYPREXA [Suspect]
     Active Substance: OLANZAPINE
     Indication: Product used for unknown indication
  4. PAXIL [Concomitant]
     Active Substance: PAROXETINE HYDROCHLORIDE
     Indication: Product used for unknown indication
  5. ATORVASTATIN [Concomitant]
     Active Substance: ATORVASTATIN
     Indication: Product used for unknown indication
  6. LISINOPRIL [Concomitant]
     Active Substance: LISINOPRIL
     Indication: Blood pressure measurement
  7. VASCEPA [Concomitant]
     Active Substance: ICOSAPENT ETHYL
     Indication: Hepatic steatosis

REACTIONS (3)
  - Chills [Unknown]
  - Hyperhidrosis [Unknown]
  - Off label use [Unknown]
